FAERS Safety Report 19117240 (Version 1)
Quarter: 2021Q2

REPORT INFORMATION
  Report Type: Spontaneous
  Country: US (occurrence: US)
  Receive Date: 20210409
  Receipt Date: 20210409
  Transmission Date: 20210717
  Serious: No
  Sender: FDA-Public Use
  Company Number: US-SA-2021SA112849

PATIENT
  Sex: Male

DRUGS (1)
  1. ALLEGRA ALLERGY [Suspect]
     Active Substance: FEXOFENADINE HYDROCHLORIDE
     Indication: DERMATITIS ALLERGIC
     Dosage: DRUG INTERVAL DOSAGE : AS NEEDED;1 ?2 TIME PER WEEK
     Route: 065

REACTIONS (3)
  - Rash erythematous [Unknown]
  - Sneezing [Unknown]
  - Inappropriate schedule of product administration [Unknown]
